FAERS Safety Report 10186720 (Version 3)
Quarter: 2017Q2

REPORT INFORMATION
  Report Type: Report from Study
  Country: AU (occurrence: AU)
  Receive Date: 20140521
  Receipt Date: 20170419
  Transmission Date: 20170829
  Serious: Yes (Hospitalization, Other)
  Sender: FDA-Public Use
  Company Number: PHHY2014AU057996

PATIENT
  Age: 85 Year
  Sex: Female
  Weight: 55 kg

DRUGS (9)
  1. SANDOSTATIN LAR DEPOT [Suspect]
     Active Substance: OCTREOTIDE ACETATE
     Indication: ACRAL OVERGROWTH
     Dosage: 30 MG
     Route: 030
     Dates: start: 200407
  2. WARFARIN [Concomitant]
     Active Substance: WARFARIN
     Indication: ANTICOAGULANT THERAPY
     Dosage: UNK UKN, DAILY
     Route: 048
  3. NORVASC [Concomitant]
     Active Substance: AMLODIPINE BESYLATE
     Dosage: UNK UKN, UNK
  4. NIZATIDINE. [Concomitant]
     Active Substance: NIZATIDINE
     Dosage: UNK UKN, UNK
  5. OSTEVIT-D [Concomitant]
     Dosage: UNK UKN, UNK
  6. RANITIDINE. [Concomitant]
     Active Substance: RANITIDINE
     Dosage: UNK UKN, UNK
  7. ACLASTA [Concomitant]
     Active Substance: ZOLEDRONIC ACID
     Indication: OSTEOPOROSIS
     Dosage: UNK UKN, UNK
     Route: 042
  8. THYROXINE [Concomitant]
     Active Substance: LEVOTHYROXINE
     Indication: HYPERKALAEMIA
     Dosage: UNK UKN, DAILY
     Route: 048
  9. NORSPAN-M [Concomitant]
     Indication: PAIN
     Dosage: UNK UKN, WEEKS
     Route: 061

REACTIONS (21)
  - Sleep disorder [Unknown]
  - Memory impairment [Unknown]
  - Gastritis erosive [Unknown]
  - Musculoskeletal stiffness [Unknown]
  - Weight decreased [Unknown]
  - Depression [Unknown]
  - Jaundice [Unknown]
  - Irritability [Unknown]
  - Loss of consciousness [Unknown]
  - Gingival bleeding [Unknown]
  - Pancreatic cyst [Unknown]
  - Atrioventricular block first degree [Unknown]
  - Muscle rigidity [Unknown]
  - Dyskinesia [Unknown]
  - Tonic convulsion [Unknown]
  - Encephalopathy [Unknown]
  - Oesophagitis [Unknown]
  - Seizure [Recovered/Resolved]
  - Confusional state [Unknown]
  - Focal dyscognitive seizures [Unknown]
  - Muscle spasms [Unknown]

NARRATIVE: CASE EVENT DATE: 2011
